FAERS Safety Report 5412325-1 (Version None)
Quarter: 2007Q3

REPORT INFORMATION
  Report Type: 
  Country: None (occurrence: None)
  Receive Date: 20070813
  Receipt Date: 20070806
  Transmission Date: 20080115
  Serious: Yes (Death)
  Sender: FDA-Public Use
  Company Number: JP-GENENTECH-242664

PATIENT
  Age: 67 Year
  Sex: Male

DRUGS (17)
  1. RITUXAN [Suspect]
     Indication: NON-HODGKIN'S LYMPHOMA
     Dosage: 375 MG/M2, QD
     Route: 042
     Dates: start: 20060831, end: 20070403
  2. RITUXAN [Suspect]
     Dates: start: 20070301
  3. MITOXANTRONE [Suspect]
     Indication: NON-HODGKIN'S LYMPHOMA
     Dosage: 10 MG, UNK
     Route: 042
     Dates: start: 20070215, end: 20070320
  4. ETOPOSIDE [Suspect]
     Indication: NON-HODGKIN'S LYMPHOMA
     Dosage: 100 MG, UNK
     Route: 042
     Dates: start: 20070215, end: 20070324
  5. CARBOPLATIN [Suspect]
     Indication: NON-HODGKIN'S LYMPHOMA
     Dosage: 400 MG, UNK
     Route: 042
     Dates: start: 20070215, end: 20070320
  6. PREDNISOLONE [Suspect]
     Indication: NON-HODGKIN'S LYMPHOMA
     Dosage: 60 MG, UNK
     Route: 042
     Dates: start: 20070215, end: 20070324
  7. ADRIAMYCIN PFS [Suspect]
     Indication: NON-HODGKIN'S LYMPHOMA
     Dosage: 50 MG, UNK
     Route: 042
     Dates: start: 20060814, end: 20061124
  8. ENDOXAN [Suspect]
     Indication: NON-HODGKIN'S LYMPHOMA
     Dosage: 750 MG, UNK
     Route: 042
     Dates: start: 20060814, end: 20061124
  9. ONCOVIN [Suspect]
     Indication: NON-HODGKIN'S LYMPHOMA
     Dosage: 1.4 MG, UNK
     Route: 042
     Dates: start: 20060814, end: 20061124
  10. PREDONINE [Suspect]
     Indication: NON-HODGKIN'S LYMPHOMA
     Dosage: 60 MG, UNK
     Route: 048
     Dates: start: 20060901
  11. MONOAMMONIUM GLYCYRRHIZINATE [Concomitant]
     Indication: HEPATIC FUNCTION ABNORMAL
  12. PLATELETS [Concomitant]
     Indication: DRUG USE FOR UNKNOWN INDICATION
     Dosage: 15 UNIT, UNK
     Dates: start: 20070402
  13. FILGRASTIM [Concomitant]
     Indication: DRUG USE FOR UNKNOWN INDICATION
     Dosage: 75 UNK, UNK
     Route: 058
     Dates: start: 20070326, end: 20070406
  14. PENTCILLIN [Concomitant]
     Indication: DRUG USE FOR UNKNOWN INDICATION
     Dosage: 4 G, UNK
     Route: 042
     Dates: start: 20070313, end: 20070322
  15. MEROPENEM [Concomitant]
     Indication: DRUG USE FOR UNKNOWN INDICATION
     Dosage: 1 G, UNK
     Route: 042
     Dates: start: 20070313, end: 20070322
  16. VFEND [Concomitant]
     Indication: DRUG USE FOR UNKNOWN INDICATION
     Dosage: 280 MG, UNK
     Route: 042
     Dates: start: 20040314, end: 20070322
  17. UNASYN [Concomitant]
     Indication: DRUG USE FOR UNKNOWN INDICATION
     Dosage: 3 G, UNK
     Route: 042
     Dates: start: 20070323, end: 20070327

REACTIONS (1)
  - HEPATITIS B [None]
